FAERS Safety Report 7131782-6 (Version None)
Quarter: 2010Q4

REPORT INFORMATION
  Report Type: 
  Country: None (occurrence: None)
  Receive Date: 20101202
  Receipt Date: 20101122
  Transmission Date: 20110411
  Serious: No
  Sender: FDA-Public Use
  Company Number: US-BIOGENIDEC-2010BI041610

PATIENT
  Sex: Female

DRUGS (2)
  1. AVONEX [Suspect]
     Indication: MULTIPLE SCLEROSIS
     Route: 030
     Dates: end: 20070101
  2. AVONEX [Suspect]
     Route: 030
     Dates: start: 20070101

REACTIONS (5)
  - BALANCE DISORDER [None]
  - GAIT DISTURBANCE [None]
  - INFLUENZA LIKE ILLNESS [None]
  - MALAISE [None]
  - MUSCLE TIGHTNESS [None]
